FAERS Safety Report 22224143 (Version 1)
Quarter: 2023Q2

REPORT INFORMATION
  Report Type: Spontaneous
  Country: US (occurrence: None)
  Receive Date: 20230417
  Receipt Date: 20230417
  Transmission Date: 20230722
  Serious: Yes (Disabling, Other)
  Sender: FDA-Public Use
  Company Number: None

PATIENT
  Age: 58 Year
  Sex: Female
  Weight: 113.4 kg

DRUGS (1)
  1. UNSPECIFIED INGREDIENT [Suspect]
     Active Substance: UNSPECIFIED INGREDIENT
     Indication: Neoplasm malignant
     Dosage: OTHER FREQUENCY : EVERY 6 MONTHS ;?
     Dates: start: 202103

REACTIONS (10)
  - Balance disorder [None]
  - Dysarthria [None]
  - Fall [None]
  - Aphasia [None]
  - Loss of personal independence in daily activities [None]
  - Disturbance in attention [None]
  - Gait disturbance [None]
  - Impaired work ability [None]
  - Headache [None]
  - Fatigue [None]

NARRATIVE: CASE EVENT DATE: 20230318
